FAERS Safety Report 5862476-2 (Version None)
Quarter: 2008Q3

REPORT INFORMATION
  Report Type: 
  Country: None (occurrence: None)
  Receive Date: 20080827
  Receipt Date: 20080827
  Transmission Date: 20090109
  Serious: Yes (Hospitalization)
  Sender: FDA-Public Use
  Company Number: None

PATIENT
  Sex: Female
  Weight: 44.5 kg

DRUGS (2)
  1. CARBOPLATIN [Suspect]
     Dosage: 430 MG
  2. TAXOL [Suspect]
     Dosage: 240 MG

REACTIONS (3)
  - ANAEMIA [None]
  - DIZZINESS [None]
  - DUODENAL ULCER [None]
